FAERS Safety Report 16952689 (Version 2)
Quarter: 2019Q4

REPORT INFORMATION
  Report Type: Spontaneous
  Country: GB (occurrence: GB)
  Receive Date: 20191023
  Receipt Date: 20191029
  Transmission Date: 20200122
  Serious: Yes (Other)
  Sender: FDA-Public Use
  Company Number: GB-MYLANLABS-2019M1099728

PATIENT
  Age: 38 Year
  Sex: Female

DRUGS (2)
  1. PROMETHAZINE HYDROCHLORIDE. [Interacting]
     Active Substance: PROMETHAZINE HYDROCHLORIDE
     Indication: INSOMNIA
     Dosage: 25 MILLIGRAM, QD, UNK UNK, HS ONE AT NIGHT
     Route: 048
     Dates: start: 20190614, end: 20190617
  2. SERTRALINE [Suspect]
     Active Substance: SERTRALINE HYDROCHLORIDE
     Indication: DEPRESSION
     Dosage: 100 MILLIGRAM, QD
     Route: 048
     Dates: start: 20190529

REACTIONS (9)
  - Hallucination [Recovered/Resolved]
  - Anxiety [Recovering/Resolving]
  - Drug interaction [Unknown]
  - Psychotic disorder [Recovered/Resolved]
  - Crying [Unknown]
  - Paranoia [Recovered/Resolved]
  - Insomnia [Unknown]
  - Drug ineffective [Unknown]
  - Persecutory delusion [Recovered/Resolved]

NARRATIVE: CASE EVENT DATE: 201906
